FAERS Safety Report 21908094 (Version 1)
Quarter: 2023Q1

REPORT INFORMATION
  Report Type: Spontaneous
  Country: US (occurrence: US)
  Receive Date: 20230125
  Receipt Date: 20230125
  Transmission Date: 20230417
  Serious: Yes (Hospitalization, Other)
  Sender: FDA-Public Use
  Company Number: US-BAYER-2023P005395

PATIENT
  Age: 74 Year
  Sex: Male

DRUGS (2)
  1. ASPIRIN [Suspect]
     Active Substance: ASPIRIN
  2. CLOPIDOGREL [Suspect]
     Active Substance: CLOPIDOGREL BISULFATE

REACTIONS (5)
  - Haemoperitoneum [Recovered/Resolved]
  - Haemorrhagic cholecystitis [Recovered/Resolved]
  - Hypotension [Recovered/Resolved]
  - Haemoglobin decreased [Recovered/Resolved]
  - Labelled drug-drug interaction medication error [None]
